FAERS Safety Report 9588516 (Version 1)
Quarter: 2013Q4

REPORT INFORMATION
  Report Type: Spontaneous
  Country: US (occurrence: US)
  Receive Date: 20131003
  Receipt Date: 20131003
  Transmission Date: 20140711
  Serious: No
  Sender: FDA-Public Use
  Company Number: US-AMGEN-USASP2012064811

PATIENT
  Age: 82 Year
  Sex: Female

DRUGS (2)
  1. ENBREL [Suspect]
     Indication: RHEUMATOID ARTHRITIS
     Dosage: 50 MG, QWK
     Dates: start: 20000101
  2. METHOTREXATE [Concomitant]
     Dosage: 2.5 MG, QWK,11 TABLETS
     Route: 048
     Dates: start: 19980101

REACTIONS (2)
  - Alopecia [Not Recovered/Not Resolved]
  - Rheumatoid arthritis [Recovered/Resolved]
